FAERS Safety Report 22600647 (Version 1)
Quarter: 2023Q2

REPORT INFORMATION
  Report Type: Spontaneous
  Country: US (occurrence: US)
  Receive Date: 20230614
  Receipt Date: 20230614
  Transmission Date: 20230722
  Serious: No
  Sender: FDA-Public Use
  Company Number: US-SANOFI-01649373

PATIENT
  Age: 48 Year
  Sex: Male

DRUGS (1)
  1. INSULIN GLARGINE [Suspect]
     Active Substance: INSULIN GLARGINE
     Indication: Type 1 diabetes mellitus
     Dosage: 30 UNITS PM AND 16 UNITS AM, BID, AND DRUG TREATMENT DURATION:180 UNITS LEFT

REACTIONS (1)
  - Inappropriate schedule of product administration [Unknown]
